FAERS Safety Report 8484038-3 (Version None)
Quarter: 2012Q2

REPORT INFORMATION
  Report Type: 
  Country: None (occurrence: None)
  Receive Date: 20120627
  Receipt Date: 20120627
  Transmission Date: 20120825
  Serious: Yes (Death)
  Sender: FDA-Public Use
  Company Number: None

PATIENT
  Age: 59 Year
  Sex: Male

DRUGS (11)
  1. AREDIA [Concomitant]
  2. PLAVIX [Concomitant]
  3. .. [Concomitant]
  4. REVLIMID [Suspect]
     Indication: MULTIPLE MYELOMA
     Dosage: 5MG QOD DAILY
     Dates: start: 20110601, end: 20110801
  5. REVLIMID [Suspect]
     Indication: MULTIPLE MYELOMA
     Dosage: 5MG QOD DAILY
     Dates: start: 20081001, end: 20090901
  6. ISORDIL [Concomitant]
  7. KAYEXALATE [Concomitant]
  8. FENOFIBRATE [Concomitant]
  9. PRAVASTATIN [Concomitant]
  10. FAMOTIDINE [Concomitant]
  11. DECADRON [Concomitant]

REACTIONS (18)
  - TORSADE DE POINTES [None]
  - HYPOGLYCAEMIA [None]
  - SYNCOPE [None]
  - PNEUMONIA [None]
  - HYPOAESTHESIA [None]
  - TREMOR [None]
  - PARAESTHESIA [None]
  - HYPERGLYCAEMIA [None]
  - PALLOR [None]
  - HYPOMAGNESAEMIA [None]
  - MYOCARDIAL INFARCTION [None]
  - ANGINA UNSTABLE [None]
  - TRANSIENT ISCHAEMIC ATTACK [None]
  - FATIGUE [None]
  - NAUSEA [None]
  - BLOOD POTASSIUM INCREASED [None]
  - BRONCHITIS [None]
  - MUSCLE SPASMS [None]
